FAERS Safety Report 7597235 (Version 10)
Quarter: 2018Q3

REPORT INFORMATION
  Report Type: Spontaneous
  Country: GB (occurrence: GB)
  Receive Date: 20100920
  Receipt Date: 20180926
  Transmission Date: 20181010
  Serious: Yes (Hospitalization, Other)
  Sender: FDA-Public Use
  Company Number: GB-PFIZER INC-2010113162

PATIENT
  Age: 35 Year
  Sex: Female
  Weight: 54 kg

DRUGS (45)
  1. NORETHISTERONE [Suspect]
     Active Substance: NORETHINDRONE
     Indication: BACK PAIN
     Dosage: 350 UG, UNK
     Dates: start: 20091023
  2. LANSOPRAZOLE. [Suspect]
     Active Substance: LANSOPRAZOLE
     Dosage: UNK
     Route: 048
  3. ARIPIPRAZOLE. [Suspect]
     Active Substance: ARIPIPRAZOLE
     Dosage: 30 MG, UNK
     Dates: start: 20100730
  4. ARIPIPRAZOLE. [Suspect]
     Active Substance: ARIPIPRAZOLE
     Dosage: 30 MG, UNK
     Dates: start: 20100205
  5. LAMICTAL [Suspect]
     Active Substance: LAMOTRIGINE
     Dosage: 800 MG, 1X/DAY
     Route: 048
  6. CLOBAZAM [Concomitant]
     Active Substance: CLOBAZAM
     Dosage: 0.5 DF, UNK
     Dates: start: 20100709
  7. CO?AMOXICLAV [Concomitant]
     Active Substance: AMOXICILLIN\CLAVULANATE POTASSIUM
     Dosage: 500/125; TDS
     Dates: start: 20100517
  8. MICONAZOLE. [Concomitant]
     Active Substance: MICONAZOLE
     Dosage: 24 MG/ML, 1X/DAY
     Dates: start: 20100618
  9. PROCHLORPERAZINE. [Concomitant]
     Active Substance: PROCHLORPERAZINE
     Indication: NAUSEA
     Dosage: 5 MG, AS NEEDED FOR NAUSEA
     Route: 048
     Dates: start: 20091221
  10. LANSOPRAZOLE. [Suspect]
     Active Substance: LANSOPRAZOLE
     Dosage: 30 MG, UNK AT 22 WEEKS GESTATION
     Route: 048
  11. AMOXICILLIN TRIHYDRATE [Concomitant]
     Active Substance: AMOXICILLIN
     Dosage: 500 MG, 3X/DAY
     Dates: start: 20091130
  12. AMOXICILLIN TRIHYDRATE [Concomitant]
     Active Substance: AMOXICILLIN
     Dosage: 1 DF, 3X/DAY
     Dates: start: 20100328
  13. DICLOFENAC SODIUM. [Concomitant]
     Active Substance: DICLOFENAC SODIUM
     Dosage: 50 MG, 3X/DAY, GEL
     Dates: start: 20090501
  14. OMEPRAZOLE. [Concomitant]
     Active Substance: OMEPRAZOLE
     Dosage: 20MG; DAILY DOSE
     Route: 048
     Dates: start: 20090501
  15. SERTRALINE HCL [Suspect]
     Active Substance: SERTRALINE HYDROCHLORIDE
     Dosage: 100 MG, 2X/DAY
     Route: 048
  16. LANSOPRAZOLE. [Suspect]
     Active Substance: LANSOPRAZOLE
     Dosage: 30 MG, UNK
     Route: 048
     Dates: start: 20100730
  17. SERTRALINE HCL [Suspect]
     Active Substance: SERTRALINE HYDROCHLORIDE
     Dosage: 100 MG, 2X/DAY
     Route: 048
     Dates: start: 20100730
  18. ARIPIPRAZOLE. [Suspect]
     Active Substance: ARIPIPRAZOLE
     Dosage: 15 MG, UNK
     Dates: start: 20100702
  19. PROPRANOLOL [Suspect]
     Active Substance: PROPRANOLOL HYDROCHLORIDE
     Dosage: 10 MG, UNK
     Route: 048
  20. LAMICTAL [Suspect]
     Active Substance: LAMOTRIGINE
     Indication: EPILEPSY
     Dosage: 400 MG, 2X/DAY
     Route: 048
     Dates: start: 2004
  21. LAMICTAL [Suspect]
     Active Substance: LAMOTRIGINE
     Dosage: 200 MG, UNK
     Dates: start: 20100730
  22. LACTULOSE. [Concomitant]
     Active Substance: LACTULOSE
     Dosage: 3.35G/5ML; 5?10ML DAILY DOSE
     Dates: start: 20090722
  23. LIDOCAINE. [Concomitant]
     Active Substance: LIDOCAINE
     Dosage: 5 PERCENT MEDICATED PLASTER, AS NEEDED (10 PATCHES)
     Dates: start: 20100611
  24. DIHYDROCODEINE [Suspect]
     Active Substance: DIHYDROCODEINE
     Indication: BACK PAIN
     Dosage: 30 MG, 1?2 THREE TIMES DAILY
     Dates: start: 20090923
  25. LAMICTAL [Suspect]
     Active Substance: LAMOTRIGINE
     Dosage: 100 MG, 2X/DAY
     Dates: start: 20100730
  26. BETAMETHASONE. [Concomitant]
     Active Substance: BETAMETHASONE
     Dosage: 0.1 PERCENT, 2X/DAY TO EACH NOSTRIL
     Route: 045
     Dates: start: 20090722
  27. CLOBAZAM [Concomitant]
     Active Substance: CLOBAZAM
     Dosage: 0.5 DF, 2X/DAY
     Dates: start: 20100709
  28. CO?AMOXICLAV [Concomitant]
     Active Substance: AMOXICILLIN\CLAVULANATE POTASSIUM
     Dosage: 500/125; THREE TIMES DAILY DOSE
  29. LACTULOSE. [Concomitant]
     Active Substance: LACTULOSE
     Dosage: 3.35G/5ML; 5?10ML DAILY
     Dates: start: 20090506
  30. MICONAZOLE. [Concomitant]
     Active Substance: MICONAZOLE
     Dosage: 2 PERCENT CREAM AND 24MG/ML (20MG/GRAM) DAILY DOSE
     Dates: start: 20100604
  31. ARIPIPRAZOLE. [Suspect]
     Active Substance: ARIPIPRAZOLE
     Dosage: 30 MG, UNK AT 22 WEEKS GESTATION
  32. ARIPIPRAZOLE. [Suspect]
     Active Substance: ARIPIPRAZOLE
     Dosage: 30MG UNIT DOSE AND 15 MG UNIT DOSE; UNK
  33. LAMICTAL [Suspect]
     Active Substance: LAMOTRIGINE
     Dosage: 50 MG, 2X/DAY
     Dates: start: 20100618
  34. CHLORAMPHENICOL [Concomitant]
     Active Substance: CHLORAMPHENICOL
     Dosage: 0.5 PERCENT, 4X/DAY
     Route: 047
     Dates: start: 20090923
  35. CHLORAMPHENICOL [Concomitant]
     Active Substance: CHLORAMPHENICOL
     Dosage: 0.5 %, 4X/DAY
     Route: 048
     Dates: start: 20090722
  36. FOLIC ACID. [Concomitant]
     Active Substance: FOLIC ACID
     Dosage: 5 MG, UNK AT 12 WEEKS GESTATION
     Route: 048
     Dates: start: 20091130
  37. PROCHLORPERAZINE. [Concomitant]
     Active Substance: PROCHLORPERAZINE
     Dosage: 5 MG, AS NEEDED FOR NAUSEA
     Dates: start: 20100122
  38. PROPRANOLOL [Suspect]
     Active Substance: PROPRANOLOL HYDROCHLORIDE
     Dosage: 10 MG, UNK
     Route: 048
     Dates: start: 20100730
  39. LAMICTAL [Suspect]
     Active Substance: LAMOTRIGINE
     Dosage: 25 MG, 2X/DAY
     Dates: start: 20100702
  40. AMOXICILLIN TRIHYDRATE [Concomitant]
     Active Substance: AMOXICILLIN
     Dosage: 500 MG, 3X/DAY AT 7 WEEKS GESTATION
     Route: 048
     Dates: start: 20091023
  41. AMOXICILLIN TRIHYDRATE [Concomitant]
     Active Substance: AMOXICILLIN
     Dosage: 500 MG, 3X/DAY
     Dates: start: 20100226
  42. CLOBAZAM [Concomitant]
     Active Substance: CLOBAZAM
     Dosage: 1 DF, 2X/DAY
     Dates: start: 20100702, end: 20100708
  43. FOLIC ACID. [Concomitant]
     Active Substance: FOLIC ACID
     Dosage: 5 MG, UNK
     Dates: start: 20091221
  44. LIDOCAINE. [Concomitant]
     Active Substance: LIDOCAINE
     Dosage: 5 PERCENT (1 DF), AS NEEDED
     Dates: start: 20100604
  45. MICONAZOLE. [Concomitant]
     Active Substance: MICONAZOLE
     Dosage: 24MG/ML (20MG/GRAM); DAILY
     Dates: start: 20100702

REACTIONS (4)
  - Premature labour [Unknown]
  - Live birth [Unknown]
  - Seizure [Not Recovered/Not Resolved]
  - Cholestasis of pregnancy [Recovered/Resolved]

NARRATIVE: CASE EVENT DATE: 20100122
